FAERS Safety Report 9424252 (Version 1)
Quarter: 2013Q3

REPORT INFORMATION
  Report Type: Spontaneous
  Country: NO (occurrence: NO)
  Receive Date: 20130729
  Receipt Date: 20130729
  Transmission Date: 20140515
  Serious: Yes (Other)
  Sender: FDA-Public Use
  Company Number: NO-MYLANLABS-2013S1015596

PATIENT
  Age: 29 Year
  Sex: Female

DRUGS (1)
  1. REMIFENTANIL HYDROCHLORIDE [Suspect]
     Indication: ANALGESIC THERAPY
     Route: 041

REACTIONS (2)
  - Off label use [Recovered/Resolved with Sequelae]
  - Exposure during pregnancy [Recovered/Resolved with Sequelae]
